FAERS Safety Report 4500887-8 (Version None)
Quarter: 2004Q4

REPORT INFORMATION
  Report Type: 
  Country: None (occurrence: None)
  Receive Date: 20041109
  Receipt Date: 20041028
  Transmission Date: 20050328
  Serious: Yes (Other)
  Sender: FDA-Public Use
  Company Number: 2004085399

PATIENT
  Weight: 81.6475 kg

DRUGS (5)
  1. TIKOSYN [Suspect]
     Indication: HEART RATE INCREASED
     Dosage: 1000 MCG (500 MCG, 2 IN 1 D), ORAL; ABOUT 1 YEAR AGO
     Route: 048
  2. FOSINOPRIL SODIUM [Concomitant]
  3. SIMVASTATIN [Concomitant]
  4. ATENOLOL [Concomitant]
  5. ACETAMINOPHEN [Concomitant]

REACTIONS (11)
  - BLOOD PRESSURE INCREASED [None]
  - DRUG INEFFECTIVE [None]
  - ECHOCARDIOGRAM ABNORMAL [None]
  - FEAR [None]
  - IMPLANTABLE DEFIBRILLATOR MALFUNCTION [None]
  - MEDICAL DEVICE COMPLICATION [None]
  - NEURALGIA [None]
  - PROCEDURAL COMPLICATION [None]
  - TOOTH DISORDER [None]
  - TOOTH INFECTION [None]
  - TREATMENT NONCOMPLIANCE [None]
